FAERS Safety Report 8024811-9 (Version None)
Quarter: 2012Q1

REPORT INFORMATION
  Report Type: 
  Country: None (occurrence: None)
  Receive Date: 20120105
  Receipt Date: 20111226
  Transmission Date: 20120608
  Serious: Yes (Other)
  Sender: FDA-Public Use
  Company Number: FR-JNJFOC-20120100386

PATIENT
  Age: 80 Year
  Sex: Male

DRUGS (5)
  1. DEXAMETHASONE [Suspect]
     Route: 065
     Dates: start: 20111110
  2. VELCADE [Suspect]
     Indication: MYELOMA RECURRENCE
     Dosage: D1, D4, D8, D11
     Route: 065
     Dates: start: 20111110
  3. DEXAMETHASONE [Suspect]
     Indication: MYELOMA RECURRENCE
     Route: 065
     Dates: start: 20090101
  4. VELCADE [Suspect]
     Route: 065
     Dates: start: 20090101
  5. DOXORUBICIN HYDROCHLORIDE [Suspect]
     Indication: MYELOMA RECURRENCE
     Route: 042
     Dates: start: 20090101

REACTIONS (5)
  - SKIN LESION [None]
  - CARDIAC FAILURE [None]
  - SEPSIS [None]
  - MYELOMA RECURRENCE [None]
  - SKIN ULCER [None]
